FAERS Safety Report 5241702-7 (Version None)
Quarter: 2007Q1

REPORT INFORMATION
  Report Type: 
  Country: None (occurrence: None)
  Receive Date: 20070220
  Receipt Date: 20070208
  Transmission Date: 20070707
  Serious: Yes (Other)
  Sender: FDA-Public Use
  Company Number: HQWYE390126JUL06

PATIENT
  Age: 56 Year
  Sex: Male

DRUGS (6)
  1. PANTOPRAZOLE SODIUM [Suspect]
     Indication: CHEST PAIN
     Dates: start: 20050906, end: 20050911
  2. PANTOPRAZOLE SODIUM [Suspect]
     Indication: PHARYNGOLARYNGEAL PAIN
  3. ALTACE [Concomitant]
     Dosage: 5 MG, FREQUENCY UNSPECIFIED
  4. NORVASC [Concomitant]
     Dosage: 10 MG, FREQUENCY UNSPECIFIED
  5. LIPITOR [Concomitant]
     Dosage: 80 MG, FREQUENCY UNSPECIFIED
     Dates: end: 20050911
  6. AVANDIA [Concomitant]
     Dosage: 8 MG, FREQUENCY UNSPECIFIED
     Dates: end: 20060911

REACTIONS (3)
  - ALANINE AMINOTRANSFERASE INCREASED [None]
  - ASPARTATE AMINOTRANSFERASE INCREASED [None]
  - BLOOD LACTATE DEHYDROGENASE INCREASED [None]
